FAERS Safety Report 25075088 (Version 1)
Quarter: 2025Q1

REPORT INFORMATION
  Report Type: Spontaneous
  Country: FR (occurrence: FR)
  Receive Date: 20250313
  Receipt Date: 20250313
  Transmission Date: 20250409
  Serious: Yes (Hospitalization)
  Sender: RANBAXY
  Company Number: FR-AFSSAPS-MP2025000083

PATIENT
  Age: 87 Year
  Sex: Female
  Weight: 65 kg

DRUGS (7)
  1. CEFTRIAXONE [Suspect]
     Active Substance: CEFTRIAXONE
     Indication: Urinary tract infection
     Route: 030
     Dates: start: 20250112, end: 20250114
  2. GEMCITABINE [Suspect]
     Active Substance: GEMCITABINE
     Indication: Pancreatic carcinoma
     Route: 040
     Dates: start: 20241125, end: 20241125
  3. IOBITRIDOL [Suspect]
     Active Substance: IOBITRIDOL
     Indication: Computerised tomogram
     Route: 040
     Dates: start: 20250109, end: 20250109
  4. TRIMEBUTINE [Suspect]
     Active Substance: TRIMEBUTINE
     Indication: Pancreatic carcinoma
     Dosage: 2 DOSAGE FORM, DAILY
     Route: 040
     Dates: start: 20250108, end: 20250116
  5. SPASFON [Concomitant]
     Indication: Pancreatic carcinoma
     Dosage: 6 DOSAGE FORM, DAILY
     Route: 040
     Dates: start: 20250108
  6. METOCLOPRAMIDE [Concomitant]
     Active Substance: METOCLOPRAMIDE
     Indication: Pancreatic carcinoma
     Dosage: 2 DOSAGE FORM, DAILY
     Route: 040
     Dates: start: 202501
  7. MORPHINE [Concomitant]
     Active Substance: MORPHINE
     Indication: Pancreatic carcinoma
     Dosage: 2 DOSAGE FORM, DAILY
     Route: 065

REACTIONS (1)
  - Toxic epidermal necrolysis [Not Recovered/Not Resolved]
